FAERS Safety Report 14661321 (Version 1)
Quarter: 2018Q1

REPORT INFORMATION
  Report Type: Spontaneous
  Country: MX (occurrence: MX)
  Receive Date: 20180320
  Receipt Date: 20180320
  Transmission Date: 20180509
  Serious: Yes (Other)
  Sender: FDA-Public Use
  Company Number: MX-BAUSCH-BL-2018-006627

PATIENT
  Age: 63 Year
  Sex: Female

DRUGS (5)
  1. IMIQUIMOD 5 PERCENT CREAM [Concomitant]
     Indication: DERMATOSIS
  2. BECLOMETHASONE AEROSOL [Concomitant]
     Indication: BRONCHITIS CHRONIC
  3. KETOTIFEN [Concomitant]
     Active Substance: KETOTIFEN
     Indication: BRONCHITIS CHRONIC
  4. TRETINOIN 0.05 % CREAM [Suspect]
     Active Substance: TRETINOIN
     Indication: DERMATOSIS
     Route: 065
  5. NIFEDIPINE. [Concomitant]
     Active Substance: NIFEDIPINE
     Indication: HYPERTENSION

REACTIONS (1)
  - Therapy partial responder [Unknown]
